FAERS Safety Report 12432854 (Version 1)
Quarter: 2016Q2

REPORT INFORMATION
  Report Type: Spontaneous
  Country: GB (occurrence: GB)
  Receive Date: 20160603
  Receipt Date: 20160603
  Transmission Date: 20160815
  Serious: Yes (Other)
  Sender: FDA-Public Use
  Company Number: GB-NOVOPROD-493938

PATIENT
  Age: 36 Year
  Sex: Female
  Weight: 163.2 kg

DRUGS (2)
  1. VICTOZA [Suspect]
     Active Substance: LIRAGLUTIDE
     Indication: TYPE 2 DIABETES MELLITUS
     Dosage: 1.2 MG, QD
     Route: 065
  2. RISPERIDONE. [Concomitant]
     Active Substance: RISPERIDONE
     Dosage: UNK

REACTIONS (1)
  - Alopecia [Not Recovered/Not Resolved]
